FAERS Safety Report 8652411 (Version 3)
Quarter: 2012Q4

REPORT INFORMATION
  Report Type: Report from Study
  Country: CA (occurrence: CA)
  Receive Date: 20120706
  Receipt Date: 20121217
  Transmission Date: 20130627
  Serious: No
  Sender: FDA-Public Use
  Company Number: CA-ROCHE-1083999

PATIENT
  Age: 54 Year
  Sex: Female
  Weight: 71.2 kg

DRUGS (8)
  1. PEG-INTERFERON ALFA 2A [Suspect]
     Indication: CHRONIC HEPATITIS C
     Route: 058
     Dates: start: 20120529, end: 20120605
  2. RIBAVIRIN [Suspect]
     Indication: CHRONIC HEPATITIS C
     Route: 048
     Dates: start: 20120529
  3. BI 201335 [Suspect]
     Indication: CHRONIC HEPATITIS C
     Route: 048
     Dates: start: 20120529
  4. BI 207127 [Suspect]
     Indication: CHRONIC HEPATITIS C
     Dosage: 600 mg TID (200 mg 9 times in one day)
     Route: 048
  5. ADVIL [Concomitant]
     Indication: ARTHRALGIA
     Route: 048
     Dates: start: 2006
  6. ADVIL [Concomitant]
     Indication: OSTEOARTHRITIS
  7. PROVERA [Concomitant]
     Route: 048
     Dates: start: 2009
  8. PREMARIN [Concomitant]
     Route: 048
     Dates: start: 2009

REACTIONS (1)
  - Acute febrile neutrophilic dermatosis [Not Recovered/Not Resolved]
